FAERS Safety Report 7752963-4 (Version None)
Quarter: 2011Q3

REPORT INFORMATION
  Report Type: 
  Country: None (occurrence: None)
  Receive Date: 20110915
  Receipt Date: 20110909
  Transmission Date: 20111222
  Serious: Yes (Hospitalization)
  Sender: FDA-Public Use
  Company Number: FR-SANOFI-AVENTIS-2011SA040021

PATIENT
  Age: 92 Year
  Sex: Female

DRUGS (8)
  1. ATACAND [Suspect]
     Route: 048
     Dates: start: 20110603
  2. PANTOPRAZOLE SODIUM [Suspect]
     Indication: GASTRIC ULCER
     Route: 048
     Dates: start: 20110603
  3. VALACICLOVIR [Suspect]
     Indication: GENITAL HERPES
     Route: 048
     Dates: start: 20110604
  4. FUROSEMIDE [Suspect]
     Route: 048
     Dates: start: 20110603, end: 20110607
  5. CIPROFLOXACIN [Suspect]
     Route: 048
     Dates: start: 20110608, end: 20110609
  6. ROCEPHIN [Suspect]
     Route: 042
     Dates: start: 20110605, end: 20110613
  7. CIPROFLOXACIN [Suspect]
     Route: 042
     Dates: start: 20110605, end: 20110606
  8. CIPROFLOXACIN [Suspect]
     Route: 042
     Dates: start: 20110607, end: 20110607

REACTIONS (2)
  - CONFUSIONAL STATE [None]
  - HALLUCINATION, VISUAL [None]
